FAERS Safety Report 16904104 (Version 1)
Quarter: 2019Q4

REPORT INFORMATION
  Report Type: Spontaneous
  Country: US (occurrence: US)
  Receive Date: 20190819
  Receipt Date: 20190819
  Transmission Date: 20200122
  Serious: Yes (Death)
  Sender: FDA-Public Use
  Company Number: None

PATIENT
  Age: 58 Year
  Sex: Female

DRUGS (1)
  1. ETOPOSIDE 50MG [Suspect]
     Active Substance: ETOPOSIDE
     Indication: OVARIAN CANCER
     Dosage: ?          OTHER FREQUENCY:4 DAYS A WEEK;?
     Route: 048
     Dates: start: 20190306

REACTIONS (1)
  - Death [None]

NARRATIVE: CASE EVENT DATE: 20190718
